FAERS Safety Report 21034299 (Version 6)
Quarter: 2022Q3

REPORT INFORMATION
  Report Type: Report from Study
  Country: US (occurrence: US)
  Receive Date: 20220701
  Receipt Date: 20220921
  Transmission Date: 20221026
  Serious: Yes (Other)
  Sender: FDA-Public Use
  Company Number: US-HORIZON THERAPEUTICS-HZN-2022-002128

PATIENT

DRUGS (12)
  1. TEPEZZA [Suspect]
     Active Substance: TEPROTUMUMAB-TRBW
     Indication: Endocrine ophthalmopathy
     Dosage: 1ST INFUSION OF FIRST COURSE
     Route: 042
     Dates: start: 20200423, end: 2020
  2. TEPEZZA [Suspect]
     Active Substance: TEPROTUMUMAB-TRBW
     Indication: Hyperthyroidism
     Dosage: 900 MG (10 MG/KG), EVERY 3 WEEKS - FIRST INFUSION
     Route: 042
     Dates: start: 20220401
  3. TEPEZZA [Suspect]
     Active Substance: TEPROTUMUMAB-TRBW
     Dosage: 20 MG/KG (SECOND INFUSION OF SECOND COURSE)
     Route: 042
     Dates: start: 2022
  4. TEPEZZA [Suspect]
     Active Substance: TEPROTUMUMAB-TRBW
     Dosage: INFUSION 3  (SECOND CYCLE)
     Route: 042
     Dates: start: 2022
  5. TEPEZZA [Suspect]
     Active Substance: TEPROTUMUMAB-TRBW
     Dosage: 1960 MG, EVERY 3 WEEKS (INFUSION 5)
     Route: 042
     Dates: start: 20220622
  6. TEPEZZA [Suspect]
     Active Substance: TEPROTUMUMAB-TRBW
     Dosage: INFUSION (UNSPECIFIED)
     Route: 042
     Dates: start: 202207
  7. SYNTHROID [Concomitant]
     Active Substance: LEVOTHYROXINE SODIUM
  8. PROZAC [Concomitant]
     Active Substance: FLUOXETINE HYDROCHLORIDE
  9. CLARITHROMYCIN [Concomitant]
     Active Substance: CLARITHROMYCIN
  10. FLONASE [Concomitant]
     Active Substance: FLUTICASONE PROPIONATE
  11. MELATONIN [Concomitant]
     Active Substance: MELATONIN
  12. IMITREX [Concomitant]
     Active Substance: SUMATRIPTAN SUCCINATE

REACTIONS (24)
  - Contusion [Unknown]
  - Headache [Unknown]
  - Diarrhoea [Not Recovered/Not Resolved]
  - Hypoacusis [Not Recovered/Not Resolved]
  - Fatigue [Not Recovered/Not Resolved]
  - Haemorrhagic diathesis [Unknown]
  - Abnormal dreams [Recovered/Resolved]
  - Anxiety [Recovering/Resolving]
  - Urine odour abnormal [Not Recovered/Not Resolved]
  - Mood swings [Unknown]
  - Abdominal discomfort [Not Recovered/Not Resolved]
  - Onychomadesis [Recovering/Resolving]
  - Skin haemorrhage [Unknown]
  - Onychoclasis [Not Recovered/Not Resolved]
  - Injection site pain [Unknown]
  - Tinnitus [Unknown]
  - Dry skin [Not Recovered/Not Resolved]
  - Muscle spasms [Recovered/Resolved]
  - Nerve compression [Unknown]
  - Intentional product use issue [Unknown]
  - Symptom recurrence [Unknown]
  - Adverse drug reaction [Unknown]
  - Lacrimation increased [Not Recovered/Not Resolved]
  - Vascular access complication [Unknown]

NARRATIVE: CASE EVENT DATE: 20200101
